FAERS Safety Report 7084884-7 (Version None)
Quarter: 2010Q4

REPORT INFORMATION
  Report Type: 
  Country: None (occurrence: None)
  Receive Date: 20101027
  Receipt Date: 20101020
  Transmission Date: 20110411
  Serious: Yes (Death, Hospitalization)
  Sender: FDA-Public Use
  Company Number: 2010JP006073

PATIENT
  Sex: Female

DRUGS (2)
  1. PROGRAF [Suspect]
     Indication: RHEUMATOID ARTHRITIS
     Dosage: 1 MG, /D, ORAL
     Route: 048
     Dates: start: 20080601, end: 20090901
  2. METHOTREXATE [Suspect]
     Dosage: 8 MG, /D, ORAL
     Route: 048
     Dates: start: 20050401, end: 20090901

REACTIONS (2)
  - LYMPHOMA [None]
  - LYMPHOPROLIFERATIVE DISORDER [None]
